FAERS Safety Report 18621903 (Version 1)
Quarter: 2020Q4

REPORT INFORMATION
  Report Type: Spontaneous
  Country: US (occurrence: US)
  Receive Date: 20201216
  Receipt Date: 20201216
  Transmission Date: 20210114
  Serious: No
  Sender: FDA-Public Use
  Company Number: US-TAKEDA-2020TUS057554

PATIENT
  Sex: Female
  Weight: 62.59 kg

DRUGS (15)
  1. CYANOCOBALAMIN. [Concomitant]
     Active Substance: CYANOCOBALAMIN
  2. BENAZEPRIL [Concomitant]
     Active Substance: BENAZEPRIL HYDROCHLORIDE
  3. TRAMADOL. [Concomitant]
     Active Substance: TRAMADOL
  4. VITAMIN D3 [Concomitant]
     Active Substance: CHOLECALCIFEROL
  5. HYDROXYZINE [Concomitant]
     Active Substance: HYDROXYZINE HYDROCHLORIDE
  6. CUVITRU [Suspect]
     Active Substance: HUMAN IMMUNOGLOBULIN G
     Indication: IMMUNODEFICIENCY COMMON VARIABLE
     Dosage: 16 GRAM, Q2WEEKS
     Route: 058
     Dates: start: 20180823
  7. ACETAMINOPHEN. [Concomitant]
     Active Substance: ACETAMINOPHEN
  8. DIPHENHYDRAMINE. [Concomitant]
     Active Substance: DIPHENHYDRAMINE
  9. ATENOLOL. [Concomitant]
     Active Substance: ATENOLOL
  10. CRESTOR [Concomitant]
     Active Substance: ROSUVASTATIN CALCIUM
  11. LIDOCAINE. [Concomitant]
     Active Substance: LIDOCAINE
  12. EPINEPHRINE. [Concomitant]
     Active Substance: EPINEPHRINE
  13. NORVASC [Concomitant]
     Active Substance: AMLODIPINE BESYLATE
  14. CLONAZEPAM. [Concomitant]
     Active Substance: CLONAZEPAM
  15. CALTRATE WITH VITAMIN D [Concomitant]
     Active Substance: CALCIUM CARBONATE\CHOLECALCIFEROL

REACTIONS (1)
  - Neuralgia [Unknown]
